FAERS Safety Report 16085107 (Version 1)
Quarter: 2019Q2

REPORT INFORMATION
  Report Type: Spontaneous
  Country: US (occurrence: US)
  Receive Date: 20190318
  Receipt Date: 20190318
  Transmission Date: 20190711
  Serious: Yes (Disabling, Other)
  Sender: FDA-Public Use
  Company Number: None

PATIENT
  Age: 61 Year
  Sex: Female
  Weight: 90 kg

DRUGS (9)
  1. PRILOSEC [Concomitant]
     Active Substance: OMEPRAZOLE MAGNESIUM
  2. METOPROLO [Concomitant]
     Active Substance: METOPROLOL
  3. MAGNESIUM [Concomitant]
     Active Substance: MAGNESIUM
  4. LETROZOLE. [Concomitant]
     Active Substance: LETROZOLE
  5. ATORVASTATIN [Concomitant]
     Active Substance: ATORVASTATIN
  6. CENTRUM SILVER [Concomitant]
     Active Substance: MINERALS\VITAMINS
  7. FISH OIL [Concomitant]
     Active Substance: FISH OIL
  8. LOSARTAN POTASSIUM TABLETS USP 100 MG NDC NUMBER 31722-702-90 [Suspect]
     Active Substance: LOSARTAN POTASSIUM
     Indication: HYPERTENSION
     Dosage: ?          QUANTITY:1 TABLET(S);?
     Route: 048
     Dates: start: 20130101, end: 20190312
  9. CALCIUM [Concomitant]
     Active Substance: CALCIUM

REACTIONS (4)
  - Breast cancer [None]
  - Blood magnesium abnormal [None]
  - Recalled product administered [None]
  - Neuropathy peripheral [None]

NARRATIVE: CASE EVENT DATE: 20150625
